FAERS Safety Report 12276669 (Version 2)
Quarter: 2016Q2

REPORT INFORMATION
  Report Type: Spontaneous
  Country: US (occurrence: US)
  Receive Date: 20160418
  Receipt Date: 20160422
  Transmission Date: 20160815
  Serious: No
  Sender: FDA-Public Use
  Company Number: US-PFIZER INC-2016179921

PATIENT
  Age: 42 Year
  Sex: Female
  Weight: 61.23 kg

DRUGS (1)
  1. ADVIL [Suspect]
     Active Substance: IBUPROFEN
     Indication: HEADACHE
     Dosage: 2 TABLETS OF 200 MG, TABLETS, ONCE A DAY

REACTIONS (3)
  - Product shape issue [Unknown]
  - Throat irritation [Unknown]
  - Foreign body [Unknown]

NARRATIVE: CASE EVENT DATE: 20151205
